FAERS Safety Report 9119481 (Version 1)
Quarter: 2013Q1

REPORT INFORMATION
  Report Type: Spontaneous
  Country: KR (occurrence: KR)
  Receive Date: 20130207
  Receipt Date: 20130207
  Transmission Date: 20140127
  Serious: Yes (Hospitalization)
  Sender: FDA-Public Use
  Company Number: KR-MYLANLABS-2013S1002120

PATIENT
  Sex: Female

DRUGS (5)
  1. TERBINAFINE [Suspect]
     Indication: ONYCHOMYCOSIS
     Route: 065
  2. PERPHENAZINE [Interacting]
     Dosage: 4MG ADMINISTERED FOR SEVERAL YEARS
     Route: 065
  3. LORAZEPAM [Concomitant]
     Dosage: 1 MG ADMINISTERED FOR SEVERAL YEARS
     Route: 065
  4. DIAZEPAM [Concomitant]
     Dosage: 5 MG ADMINISTERED FOR SEVERAL YEARS
     Route: 065
  5. FLURAZEPAM [Concomitant]
     Dosage: 7.5 MG ADMINISTERED FOR SEVERAL YEARS
     Route: 065

REACTIONS (2)
  - Extrapyramidal disorder [Recovered/Resolved]
  - Drug interaction [Recovered/Resolved]
